FAERS Safety Report 9461089 (Version 2)
Quarter: 2013Q3

REPORT INFORMATION
  Report Type: Spontaneous
  Country: JP (occurrence: JP)
  Receive Date: 20130816
  Receipt Date: 20130828
  Transmission Date: 20140515
  Serious: Yes (Other)
  Sender: FDA-Public Use
  Company Number: JP-009507513-1308JPN005381

PATIENT
  Sex: 0

DRUGS (2)
  1. MK-0000 [Suspect]
  2. FAMOTIDINE [Suspect]
     Indication: ULCER
     Dosage: UNK

REACTIONS (1)
  - Blood albumin decreased [Unknown]
